FAERS Safety Report 11925879 (Version 2)
Quarter: 2016Q1

REPORT INFORMATION
  Report Type: Report from Study
  Country: US (occurrence: US)
  Receive Date: 20160119
  Receipt Date: 20160216
  Transmission Date: 20160526
  Serious: Yes (Life-Threatening, Hospitalization, Other)
  Sender: FDA-Public Use
  Company Number: US-AMGEN-USASL2016003364

PATIENT
  Sex: Female

DRUGS (1)
  1. ENBREL [Suspect]
     Active Substance: ETANERCEPT
     Indication: PRODUCT USED FOR UNKNOWN INDICATION
     Dosage: UNK
     Route: 065

REACTIONS (4)
  - Adverse drug reaction [Unknown]
  - Emotional distress [Unknown]
  - Hospitalisation [Unknown]
  - Pain [Unknown]
